FAERS Safety Report 7020180-1 (Version None)
Quarter: 2010Q3

REPORT INFORMATION
  Report Type: 
  Country: None (occurrence: None)
  Receive Date: 20100927
  Receipt Date: 20100915
  Transmission Date: 20110219
  Serious: Yes (Other)
  Sender: FDA-Public Use
  Company Number: 2010AC000080

PATIENT
  Age: 70 Year
  Sex: Male
  Weight: 74.8435 kg

DRUGS (25)
  1. DIGOXIN [Suspect]
     Dosage: PO
     Route: 048
     Dates: end: 20040623
  2. DIGOXIN [Suspect]
     Dosage: 0.125 MG;5 DAYS/WEEK;PO
     Route: 048
     Dates: start: 20040626, end: 20040726
  3. DIGOXIN [Suspect]
     Dosage: 0.125 MG;4 DAYS/WEEK;PO
     Route: 048
     Dates: start: 20040727, end: 20080327
  4. DIGOXIN [Suspect]
     Dosage: 0.125 MG;QOD;PO
     Route: 048
     Dates: start: 20080328, end: 20080101
  5. DIGOXIN [Suspect]
     Dosage: 0.125 MG;QD;PO
     Route: 048
     Dates: start: 20080101, end: 20090101
  6. DIGOXIN [Suspect]
     Dosage: 0.125 MG;4 DAYS/WEEK;PO
     Route: 048
     Dates: start: 20090101
  7. COREG [Concomitant]
  8. ACCUPRIL [Concomitant]
  9. BUMEX [Concomitant]
  10. LIPITOR [Concomitant]
  11. COUMADIN [Concomitant]
  12. METOLAZONE [Concomitant]
  13. PLAVIX [Concomitant]
  14. ASPIRIN [Concomitant]
  15. CADUET [Concomitant]
  16. ZOCOR [Concomitant]
  17. NORVASC [Concomitant]
  18. ISOSORBIDE/HYDRALAZINE [Concomitant]
  19. CANDESARTAN CILEXETIL [Concomitant]
  20. LEVAQUIN [Concomitant]
  21. LISINOPRIL [Concomitant]
  22. KAY CIEL DURA-TABS [Concomitant]
  23. ALLOPURINOL [Concomitant]
  24. PROTONIX [Concomitant]
  25. NITROGLYCERIN [Concomitant]

REACTIONS (32)
  - AMNESIA [None]
  - ANAEMIA [None]
  - ANGER [None]
  - ANHEDONIA [None]
  - ANXIETY [None]
  - AORTIC ARTERIOSCLEROSIS [None]
  - AORTIC STENOSIS [None]
  - AORTIC VALVE INCOMPETENCE [None]
  - BREATHING-RELATED SLEEP DISORDER [None]
  - BRONCHITIS [None]
  - CARDIOACTIVE DRUG LEVEL BELOW THERAPEUTIC [None]
  - CARDIOMYOPATHY [None]
  - CAT SCRATCH DISEASE [None]
  - CELLULITIS [None]
  - COLD SWEAT [None]
  - DIARRHOEA [None]
  - DRUG LEVEL BELOW THERAPEUTIC [None]
  - ECONOMIC PROBLEM [None]
  - HEART RATE IRREGULAR [None]
  - HERNIA OBSTRUCTIVE [None]
  - INCONTINENCE [None]
  - ISCHAEMIC CARDIOMYOPATHY [None]
  - MITRAL VALVE INCOMPETENCE [None]
  - MULTIPLE INJURIES [None]
  - PAIN [None]
  - PALPITATIONS [None]
  - PULMONARY HYPERTENSION [None]
  - PULMONARY VALVE INCOMPETENCE [None]
  - RENAL FAILURE [None]
  - THERAPEUTIC AGENT TOXICITY [None]
  - TRICUSPID VALVE INCOMPETENCE [None]
  - VISUAL IMPAIRMENT [None]
